FAERS Safety Report 19967999 (Version 1)
Quarter: 2021Q4

REPORT INFORMATION
  Report Type: Spontaneous
  Country: US (occurrence: US)
  Receive Date: 20211019
  Receipt Date: 20211019
  Transmission Date: 20220303
  Serious: Yes (Life-Threatening)
  Sender: FDA-Public Use
  Company Number: None

PATIENT
  Age: 10 Year
  Sex: Male
  Weight: 29.25 kg

DRUGS (1)
  1. QELBREE [Suspect]
     Active Substance: VILOXAZINE HYDROCHLORIDE
     Indication: Attention deficit hyperactivity disorder
     Dosage: ?          QUANTITY:1 CAPSULE(S);
     Route: 048
     Dates: start: 20211008, end: 20211012

REACTIONS (10)
  - Fear [None]
  - Hallucinations, mixed [None]
  - Abnormal behaviour [None]
  - Suicidal ideation [None]
  - Physical assault [None]
  - Self-injurious ideation [None]
  - Anger [None]
  - Agitation [None]
  - Delusion [None]
  - Schizoaffective disorder [None]

NARRATIVE: CASE EVENT DATE: 20211008
